FAERS Safety Report 20697692 (Version 3)
Quarter: 2022Q2

REPORT INFORMATION
  Report Type: Report from Study
  Country: CO (occurrence: CO)
  Receive Date: 20220411
  Receipt Date: 20220420
  Transmission Date: 20220720
  Serious: Yes (Death, Other)
  Sender: FDA-Public Use
  Company Number: CO-JNJFOC-20200849183

PATIENT
  Sex: Male
  Weight: 58 kg

DRUGS (1)
  1. IMBRUVICA [Suspect]
     Active Substance: IBRUTINIB
     Indication: Chronic lymphocytic leukaemia
     Dosage: LAST INTAKE OF IBRUTINIB ON 28-AUG-2020
     Route: 048
     Dates: start: 20190824, end: 20220321

REACTIONS (2)
  - Chronic lymphocytic leukaemia [Fatal]
  - Drug ineffective [Fatal]
